FAERS Safety Report 15263435 (Version 1)
Quarter: 2018Q3

REPORT INFORMATION
  Report Type: Other
  Country: JP (occurrence: JP)
  Receive Date: 20180810
  Receipt Date: 20180810
  Transmission Date: 20181010
  Serious: Yes (Hospitalization, Other)
  Sender: FDA-Public Use
  Company Number: JP-ACTELION-A-CH2018-176995

PATIENT
  Age: 80 Year
  Sex: Female

DRUGS (1)
  1. BOSENTAN. [Suspect]
     Active Substance: BOSENTAN
     Indication: SCLERODERMA ASSOCIATED DIGITAL ULCER
     Dosage: UNK
     Route: 048
     Dates: start: 201701

REACTIONS (5)
  - Venous pressure [Unknown]
  - Skin ulcer [Recovering/Resolving]
  - Intra-aortic balloon placement [Unknown]
  - Arterial occlusive disease [Recovering/Resolving]
  - Disease progression [Unknown]

NARRATIVE: CASE EVENT DATE: 201703
